FAERS Safety Report 23854646 (Version 2)
Quarter: 2024Q2

REPORT INFORMATION
  Report Type: Report from Study
  Country: MX (occurrence: MX)
  Receive Date: 20240514
  Receipt Date: 20240605
  Transmission Date: 20240716
  Serious: Yes (Hospitalization, Other)
  Sender: FDA-Public Use
  Company Number: MX-002147023-NVSC2024MX100603

PATIENT
  Age: 60 Year
  Sex: Female
  Weight: 100 kg

DRUGS (25)
  1. KISQALI [Suspect]
     Active Substance: RIBOCICLIB
     Indication: Breast cancer
     Dosage: 600 MG, QD
     Route: 048
     Dates: start: 202206
  2. KISQALI [Suspect]
     Active Substance: RIBOCICLIB
     Dosage: UNK
     Route: 048
     Dates: start: 202207
  3. KISQALI [Suspect]
     Active Substance: RIBOCICLIB
     Dosage: 600 MG, QD
     Route: 048
  4. KISQALI [Suspect]
     Active Substance: RIBOCICLIB
     Dosage: 600 MG, QD, 3 X 200MG
     Route: 048
  5. LETROZOLE [Suspect]
     Active Substance: LETROZOLE
     Indication: Product used for unknown indication
     Dosage: UNK
     Route: 065
  6. LETROZOLE [Concomitant]
     Active Substance: LETROZOLE
     Indication: Breast cancer
     Dosage: 2.5 MG, QD
     Route: 048
     Dates: start: 202112
  7. ENALAPRIL [Concomitant]
     Active Substance: ENALAPRIL
     Indication: Hypertension
     Dosage: UNK (IN THE MORNING AND AT NIGHT)
     Route: 048
  8. CHLORTHALIDONE [Concomitant]
     Active Substance: CHLORTHALIDONE
     Indication: Hypertension
     Dosage: UNK (IN THE MORNING AND AT NIGHT)
     Route: 048
     Dates: start: 2006
  9. ENSURE [Concomitant]
     Active Substance: AMINO ACIDS\DEXTROSE\ELECTROLYTES NOS\SOYBEAN OIL\VITAMINS
     Indication: Product used for unknown indication
     Dosage: UNK
     Route: 065
  10. PREGABALIN [Concomitant]
     Active Substance: PREGABALIN
     Indication: Spinal pain
     Dosage: 75 MG (3 TIMES DAILY) (6 MONTHS)
     Route: 048
  11. PREGABALIN [Concomitant]
     Active Substance: PREGABALIN
     Dosage: 75 MG, Q12H
     Route: 065
  12. DENOSUMAB [Concomitant]
     Active Substance: DENOSUMAB
     Indication: Product used for unknown indication
     Dosage: 120 MG, QMO
     Route: 058
  13. VENLAFAXINE [Concomitant]
     Active Substance: VENLAFAXINE HYDROCHLORIDE
     Indication: Product used for unknown indication
     Dosage: 75 MG, Q12H
     Route: 065
  14. CLONAZEPAM [Concomitant]
     Active Substance: CLONAZEPAM
     Indication: Product used for unknown indication
     Dosage: 2.5 MG, Q24H
     Route: 065
  15. ONDANSETRON [Concomitant]
     Active Substance: ONDANSETRON
     Indication: Product used for unknown indication
     Dosage: 8 MG, Q8H
     Route: 065
  16. INSULIN LISPRO [Concomitant]
     Active Substance: INSULIN LISPRO
     Indication: Product used for unknown indication
     Dosage: 100 IU/ML
     Route: 065
  17. SITAGLIPTIN [Concomitant]
     Active Substance: SITAGLIPTIN
     Indication: Product used for unknown indication
     Dosage: 50 MG
     Route: 065
  18. METFORMIN [Concomitant]
     Active Substance: METFORMIN HYDROCHLORIDE
     Indication: Product used for unknown indication
     Dosage: 850 MG
     Route: 065
  19. ASPIRIN [Concomitant]
     Active Substance: ASPIRIN
     Indication: Product used for unknown indication
     Dosage: 300 MG, HALF EVERY Q24H
     Route: 065
  20. LOSARTAN [Concomitant]
     Active Substance: LOSARTAN
     Indication: Product used for unknown indication
     Dosage: 50 MG, Q12H
     Route: 065
  21. SILDENAFIL [Concomitant]
     Active Substance: SILDENAFIL
     Indication: Product used for unknown indication
     Dosage: 50 MG, Q12H
     Route: 065
  22. DORZOLAMIDE [Concomitant]
     Active Substance: DORZOLAMIDE
     Indication: Product used for unknown indication
     Dosage: 20 MG/5 MG
     Route: 065
  23. TRAVOPROST [Concomitant]
     Active Substance: TRAVOPROST
     Indication: Product used for unknown indication
     Dosage: 40 ML, Q12H
     Route: 065
  24. SALMETEROL [Concomitant]
     Active Substance: SALMETEROL
     Indication: Product used for unknown indication
     Dosage: 25
     Route: 065
  25. FLUTICASONE [Concomitant]
     Active Substance: FLUTICASONE
     Indication: Product used for unknown indication
     Dosage: 50
     Route: 065

REACTIONS (49)
  - Syncope [Unknown]
  - Blood potassium decreased [Unknown]
  - Diarrhoea [Recovering/Resolving]
  - Vomiting [Recovering/Resolving]
  - Dehydration [Recovered/Resolved]
  - Blood glucose increased [Unknown]
  - Metastases to bone [Unknown]
  - Blood glucose decreased [Unknown]
  - Ill-defined disorder [Unknown]
  - Hypotension [Unknown]
  - Depression [Recovering/Resolving]
  - Gastritis [Unknown]
  - Weight increased [Unknown]
  - Diarrhoea [Recovered/Resolved]
  - Constipation [Recovered/Resolved]
  - Malaise [Unknown]
  - Dizziness [Unknown]
  - Tension [Unknown]
  - Chills [Unknown]
  - Weight decreased [Not Recovered/Not Resolved]
  - Decreased immune responsiveness [Unknown]
  - Feeling abnormal [Unknown]
  - Hypoglycaemia [Unknown]
  - Blood pressure abnormal [Unknown]
  - Stress [Recovered/Resolved]
  - Back disorder [Unknown]
  - Anxiety [Unknown]
  - Glycosylated haemoglobin increased [Unknown]
  - Nausea [Recovered/Resolved]
  - Fatigue [Unknown]
  - Nausea [Recovering/Resolving]
  - Hunger [Unknown]
  - Asthenia [Unknown]
  - Headache [Unknown]
  - Eye opacity [Unknown]
  - Ocular discomfort [Unknown]
  - Hyperhidrosis [Unknown]
  - Blood potassium decreased [Unknown]
  - Osteoporosis [Unknown]
  - Visual impairment [Unknown]
  - Fear [Unknown]
  - Abdominal discomfort [Unknown]
  - Pain [Unknown]
  - Pruritus [Recovered/Resolved]
  - Hypersensitivity [Recovered/Resolved]
  - Pruritus [Unknown]
  - Abdominal pain upper [Unknown]
  - Food allergy [Unknown]
  - Insomnia [Unknown]

NARRATIVE: CASE EVENT DATE: 20220601
